FAERS Safety Report 5081018-5 (Version None)
Quarter: 2006Q3

REPORT INFORMATION
  Report Type: 
  Country: None (occurrence: None)
  Receive Date: 20060810
  Receipt Date: 20060726
  Transmission Date: 20061208
  Serious: Yes (Other)
  Sender: FDA-Public Use
  Company Number: US200607004753

PATIENT
  Age: 83 Year
  Sex: Female

DRUGS (3)
  1. FORTEO [Suspect]
     Indication: OSTEOPOROSIS
  2. FORTEO PEN (FORTEO PEN) [Concomitant]
  3. LIPITOR [Concomitant]

REACTIONS (5)
  - FALL [None]
  - HIP FRACTURE [None]
  - MUSCLE SPASMS [None]
  - PELVIC FRACTURE [None]
  - RIB FRACTURE [None]
